FAERS Safety Report 10932043 (Version 6)
Quarter: 2016Q2

REPORT INFORMATION
  Report Type: Spontaneous
  Country: US (occurrence: US)
  Receive Date: 20150319
  Receipt Date: 20160407
  Transmission Date: 20160815
  Serious: Yes (Life-Threatening, Congenital Anomaly, Other)
  Sender: FDA-Public Use
  Company Number: US-ELI_LILLY_AND_COMPANY-US201503005917

PATIENT
  Age: 1 Month

DRUGS (4)
  1. MISOPROSTOL. [Concomitant]
     Active Substance: MISOPROSTOL
     Indication: INDUCED LABOUR
     Dosage: UNK
     Route: 064
     Dates: start: 20131202
  2. PRENATAL                           /00231801/ [Concomitant]
     Active Substance: VITAMINS
     Indication: PRODUCT USED FOR UNKNOWN INDICATION
     Dosage: 1 DF, QD
     Route: 064
  3. CELEXA [Concomitant]
     Active Substance: CITALOPRAM HYDROBROMIDE
     Indication: PRODUCT USED FOR UNKNOWN INDICATION
     Dosage: UNK, QD
     Route: 064
  4. PROZAC [Suspect]
     Active Substance: FLUOXETINE HYDROCHLORIDE
     Indication: PRODUCT USED FOR UNKNOWN INDICATION
     Dosage: UNK, UNKNOWN
     Route: 064

REACTIONS (12)
  - Thrombosis [Unknown]
  - Failure to thrive [Unknown]
  - Seizure [Unknown]
  - Blood cortisol decreased [Unknown]
  - Selective eating disorder [Unknown]
  - Hypoxic-ischaemic encephalopathy [Unknown]
  - Hypotension [Unknown]
  - Hypothyroidism [Unknown]
  - Hypoplastic left heart syndrome [Unknown]
  - Cardiac arrest [Unknown]
  - Oedema [Unknown]
  - Foetal exposure during pregnancy [Recovered/Resolved]

NARRATIVE: CASE EVENT DATE: 201402
